FAERS Safety Report 9812937 (Version 2)
Quarter: 2014Q1

REPORT INFORMATION
  Report Type: Spontaneous
  Country: FR (occurrence: FR)
  Receive Date: 20140113
  Receipt Date: 20140127
  Transmission Date: 20141002
  Serious: Yes (Hospitalization)
  Sender: FDA-Public Use
  Company Number: FR-SA-2014SA000849

PATIENT
  Age: 92 Year
  Sex: Female

DRUGS (12)
  1. PLAVIX [Suspect]
     Indication: PRODUCT USED FOR UNKNOWN INDICATION
     Route: 048
     Dates: start: 20131117, end: 20131212
  2. KEPPRA [Suspect]
     Indication: CONVULSION
     Dosage: STENGTH: 250 MG
     Route: 048
     Dates: start: 20131114, end: 20131212
  3. RISPERDAL [Suspect]
     Indication: PRODUCT USED FOR UNKNOWN INDICATION
     Dosage: STRENGTH: 1 MG?SCORED FILM COATED TABLET
     Route: 048
     Dates: end: 20131212
  4. AUGMENTIN [Suspect]
     Indication: LUNG DISORDER
     Route: 048
     Dates: start: 20131114, end: 20131122
  5. SPECIAFOLDINE [Concomitant]
     Dosage: STRENGTH: 5MG
     Route: 048
     Dates: start: 20131116, end: 20131212
  6. AMLOR [Concomitant]
     Dosage: STRENGTH: 5MG
     Route: 048
  7. MOPRAL [Concomitant]
     Dosage: STRENGTH: 20MG
     Route: 048
  8. PRAVASTATINE [Concomitant]
     Dosage: STRENGTH: 20MG
     Dates: end: 20131116
  9. FUNGIZONE [Concomitant]
     Dates: end: 20131206
  10. TRANSIPEG [Concomitant]
  11. PARACETAMOL [Concomitant]
     Route: 048
     Dates: end: 20131212
  12. PARACETAMOL [Concomitant]

REACTIONS (7)
  - Cholestasis [Not Recovered/Not Resolved]
  - Jaundice [Not Recovered/Not Resolved]
  - Ammonia increased [Not Recovered/Not Resolved]
  - Gamma-glutamyltransferase increased [Not Recovered/Not Resolved]
  - Aspartate aminotransferase increased [Not Recovered/Not Resolved]
  - Alanine aminotransferase increased [Not Recovered/Not Resolved]
  - Blood bilirubin increased [Not Recovered/Not Resolved]
